FAERS Safety Report 12661947 (Version 1)
Quarter: 2016Q3

REPORT INFORMATION
  Report Type: Report from Study
  Country: HN (occurrence: HN)
  Receive Date: 20160817
  Receipt Date: 20160817
  Transmission Date: 20161109
  Serious: Yes (Other)
  Sender: FDA-Public Use
  Company Number: PHHY2016HN111756

PATIENT
  Age: 75 Year
  Sex: Female

DRUGS (1)
  1. ULTIBRO BREEZHALER [Suspect]
     Active Substance: GLYCOPYRRONIUM\INDACATEROL
     Indication: PRODUCT USED FOR UNKNOWN INDICATION
     Dosage: 1 DF (GLYCOPYRRONIUM BROMIDE 0.05 MG, INDACATEROL 0.11 MG), UNK (LAST DOSE: 10 AUG 2016)
     Route: 065

REACTIONS (1)
  - Respiratory tract infection [Unknown]
